FAERS Safety Report 13779474 (Version 1)
Quarter: 2017Q3

REPORT INFORMATION
  Report Type: Spontaneous
  Country: US (occurrence: US)
  Receive Date: 20170721
  Receipt Date: 20170721
  Transmission Date: 20171127
  Serious: Yes (Other)
  Sender: FDA-Public Use
  Company Number: US-AMGEN-USASP2017108359

PATIENT
  Age: 61 Year
  Sex: Female

DRUGS (5)
  1. ENBREL [Suspect]
     Active Substance: ETANERCEPT
     Indication: PRODUCT USED FOR UNKNOWN INDICATION
     Dosage: UNK
     Route: 065
  2. XELJANZ [Concomitant]
     Active Substance: TOFACITINIB CITRATE
     Dosage: 5 MG, UNK
  3. XELJANZ [Concomitant]
     Active Substance: TOFACITINIB CITRATE
     Dosage: 5 MG, UNK
  4. LIDOCAINE. [Suspect]
     Active Substance: LIDOCAINE
     Indication: SYNOVITIS
     Dosage: 4 %, UNK
     Route: 065
  5. METHOTREXATE. [Concomitant]
     Active Substance: METHOTREXATE
     Indication: PRODUCT USED FOR UNKNOWN INDICATION
     Dosage: UNK
     Route: 065

REACTIONS (32)
  - Peripheral swelling [Unknown]
  - Pain in extremity [Unknown]
  - Blood cholesterol increased [Unknown]
  - Limb injury [Unknown]
  - Eye pruritus [Unknown]
  - Skin discolouration [Unknown]
  - Musculoskeletal stiffness [Unknown]
  - Depression [Unknown]
  - Nodal osteoarthritis [Unknown]
  - Fatigue [Unknown]
  - Back injury [Unknown]
  - Upper-airway cough syndrome [Unknown]
  - Migraine [Unknown]
  - Muscle spasms [Unknown]
  - Hyperhidrosis [Unknown]
  - Dry eye [Unknown]
  - Dyspnoea [Unknown]
  - Anxiety [Unknown]
  - Insomnia [Unknown]
  - Grip strength decreased [Unknown]
  - Arthralgia [Unknown]
  - Limb discomfort [Unknown]
  - Dyspepsia [Recovering/Resolving]
  - Agitation [Unknown]
  - Cataract operation [Unknown]
  - Pain [Unknown]
  - Dysphonia [Unknown]
  - Micturition urgency [Unknown]
  - Alopecia [Recovered/Resolved]
  - Dizziness [Unknown]
  - Amnesia [Unknown]
  - Synovitis [Unknown]

NARRATIVE: CASE EVENT DATE: 20170410
